FAERS Safety Report 18275149 (Version 3)
Quarter: 2021Q2

REPORT INFORMATION
  Report Type: Spontaneous
  Country: JP (occurrence: JP)
  Receive Date: 20200916
  Receipt Date: 20210524
  Transmission Date: 20210717
  Serious: Yes (Death)
  Sender: FDA-Public Use
  Company Number: JP-JNJFOC-20200909980

PATIENT
  Age: 90 Year
  Sex: Female
  Weight: 42 kg

DRUGS (6)
  1. HIRUDOID [Concomitant]
     Active Substance: GLYCOSAMINOGLYCANS
  2. TAKEPRON [Concomitant]
     Active Substance: LANSOPRAZOLE
  3. UPTRAVI [Suspect]
     Active Substance: SELEXIPAG
     Indication: PULMONARY HYPERTENSION
     Dosage: 0.2MG X 2/DAY
     Route: 048
     Dates: start: 20181002
  4. TRACLEER [Concomitant]
     Active Substance: BOSENTAN
     Indication: PULMONARY HYPERTENSION
  5. NEXIUM [Concomitant]
     Active Substance: ESOMEPRAZOLE MAGNESIUM
     Indication: GASTROOESOPHAGEAL REFLUX DISEASE
  6. FLUTIDE [Concomitant]
     Indication: INTERSTITIAL LUNG DISEASE

REACTIONS (2)
  - Hypophagia [Fatal]
  - Marasmus [Fatal]
